FAERS Safety Report 14673762 (Version 1)
Quarter: 2018Q1

REPORT INFORMATION
  Report Type: Spontaneous
  Country: US (occurrence: US)
  Receive Date: 20180323
  Receipt Date: 20180323
  Transmission Date: 20180509
  Serious: Yes (Other)
  Sender: FDA-Public Use
  Company Number: US-PFIZER INC-2018119655

PATIENT
  Age: 32 Year
  Sex: Female
  Weight: 77 kg

DRUGS (6)
  1. BACLOFEN. [Concomitant]
     Active Substance: BACLOFEN
     Indication: NON-CARDIAC CHEST PAIN
     Dosage: 2.5 MG, 3X/DAY (HALF A TABLET THREE TIMES A DAY)
     Route: 048
     Dates: start: 20180203
  2. LOPRESSOR [Concomitant]
     Active Substance: METOPROLOL TARTRATE
     Indication: HEART RATE ABNORMAL
     Dosage: 50 MG, 2X/DAY
     Route: 048
     Dates: start: 201605
  3. PRILOSEC [Concomitant]
     Active Substance: OMEPRAZOLE MAGNESIUM
     Indication: GASTROOESOPHAGEAL REFLUX DISEASE
     Dosage: 40 MG, 1X/DAY
     Route: 048
  4. PROZAC [Concomitant]
     Active Substance: FLUOXETINE HYDROCHLORIDE
     Indication: DEPRESSION
     Dosage: 40 MG, 1X/DAY
     Route: 048
  5. LYRICA [Suspect]
     Active Substance: PREGABALIN
     Indication: ENDOMETRIOSIS
     Dosage: 75 MG, 2X/DAY
     Route: 048
     Dates: start: 2017
  6. LYRICA [Suspect]
     Active Substance: PREGABALIN
     Dosage: 75 MG, 3X/DAY
     Route: 048

REACTIONS (6)
  - Drug ineffective for unapproved indication [Unknown]
  - Ovarian fibrosis [Unknown]
  - Therapeutic response unexpected [Unknown]
  - Adenomyosis [Unknown]
  - Pre-existing condition improved [Unknown]
  - Ovarian mass [Unknown]

NARRATIVE: CASE EVENT DATE: 2017
